FAERS Safety Report 21222019 (Version 1)
Quarter: 2022Q3

REPORT INFORMATION
  Report Type: Spontaneous
  Country: TR (occurrence: TR)
  Receive Date: 20220817
  Receipt Date: 20220817
  Transmission Date: 20221027
  Serious: Yes (Other)
  Sender: FDA-Public Use
  Company Number: TR-NOVARTISPH-NVSC2022TR185561

PATIENT
  Age: 87 Year
  Sex: Male

DRUGS (1)
  1. EXELON [Suspect]
     Active Substance: RIVASTIGMINE TARTRATE
     Indication: Dementia Alzheimer^s type
     Dosage: 13.3 MG , (PATCH 15 (CM2), 27 MG RIVASTIGMINE BASE)
     Route: 065

REACTIONS (4)
  - Dementia Alzheimer^s type [Unknown]
  - Hallucination [Unknown]
  - Condition aggravated [Unknown]
  - Product supply issue [Unknown]
